FAERS Safety Report 5566717-0 (Version None)
Quarter: 2007Q4

REPORT INFORMATION
  Report Type: 
  Country: None (occurrence: None)
  Receive Date: 20071219
  Receipt Date: 20071219
  Transmission Date: 20080405
  Serious: Yes (Other)
  Sender: FDA-Public Use
  Company Number: A0699692A

PATIENT
  Age: 60 Year
  Sex: Female

DRUGS (7)
  1. ALLI [Suspect]
     Indication: WEIGHT LOSS DIET
     Route: 048
  2. METHOTREXATE [Concomitant]
  3. BENAZAPRIL [Concomitant]
  4. AZO STANDARD [Concomitant]
  5. EVOXAC [Concomitant]
  6. VITAMIN [Concomitant]
  7. FOLIC ACID [Concomitant]

REACTIONS (6)
  - ARTERIAL OCCLUSIVE DISEASE [None]
  - CHEST DISCOMFORT [None]
  - DECREASED APPETITE [None]
  - HEPATIC ENZYME INCREASED [None]
  - MYOCARDIAL INFARCTION [None]
  - VOMITING [None]
